FAERS Safety Report 9606174 (Version 2)
Quarter: 2013Q4

REPORT INFORMATION
  Report Type: Spontaneous
  Country: US (occurrence: US)
  Receive Date: 20131008
  Receipt Date: 20131008
  Transmission Date: 20140711
  Serious: No
  Sender: FDA-Public Use
  Company Number: US-AMGEN-USASP2013043184

PATIENT
  Sex: Female
  Weight: 94.33 kg

DRUGS (5)
  1. PROLIA [Suspect]
     Indication: OSTEOPOROSIS
     Dosage: UNK UNK, Q6MO
  2. SYNTHROID [Concomitant]
     Indication: HYPOTHYROIDISM
     Dosage: 0.05 G, UNK
     Route: 048
  3. HCT [Concomitant]
     Indication: BLOOD PRESSURE
     Dosage: 25
     Route: 048
  4. HCT [Concomitant]
     Indication: OEDEMA
  5. LASIX                              /00032601/ [Concomitant]
     Indication: OEDEMA
     Dosage: UNK UNK, Q6MO

REACTIONS (2)
  - Temporomandibular joint syndrome [Recovered/Resolved]
  - Pain in jaw [Unknown]
